FAERS Safety Report 18357152 (Version 1)
Quarter: 2020Q4

REPORT INFORMATION
  Report Type: Spontaneous
  Country: NL (occurrence: FR)
  Receive Date: 20201007
  Receipt Date: 20201007
  Transmission Date: 20210114
  Serious: Yes (Death, Hospitalization)
  Sender: FDA-Public Use
  Company Number: FR-FRESENIUS KABI-FK202010344

PATIENT
  Age: 64 Year
  Sex: Male
  Weight: 76 kg

DRUGS (5)
  1. PEMETREXED. [Suspect]
     Active Substance: PEMETREXED
     Indication: LUNG NEOPLASM MALIGNANT
     Dosage: 700 MILLIGRAM
     Route: 042
     Dates: start: 20200327, end: 20200423
  2. DEXCHLORPHENIRAMINE MALEATE. [Suspect]
     Active Substance: DEXCHLORPHENIRAMINE MALEATE
     Indication: CHEMOTHERAPY
     Dosage: 5 MILLIGRAM
     Route: 042
     Dates: start: 20200327, end: 20200423
  3. ONDANSETRON (MANUFACTURER UNKNOWN) [Suspect]
     Active Substance: ONDANSETRON
     Indication: CHEMOTHERAPY
     Dosage: 8 MILLIGRAM
     Route: 042
     Dates: start: 20200327, end: 20200423
  4. METHYLPREDNISOLONE. [Suspect]
     Active Substance: METHYLPREDNISOLONE
     Indication: CHEMOTHERAPY
     Dosage: 80 MILLIGRAM
     Route: 042
     Dates: start: 20200327, end: 20200423
  5. CARBOPLATIN. [Suspect]
     Active Substance: CARBOPLATIN
     Indication: LUNG NEOPLASM MALIGNANT
     Dosage: 350 MILLIGRAM
     Route: 042
     Dates: start: 20200327, end: 20200423

REACTIONS (10)
  - Thrombocytopenia [Unknown]
  - Pain [Unknown]
  - Anaemia [Unknown]
  - Inflammation [Unknown]
  - Diarrhoea [Unknown]
  - Skin toxicity [Fatal]
  - Nausea [Unknown]
  - Haematotoxicity [Fatal]
  - Vomiting [Unknown]
  - Neutropenia [Unknown]

NARRATIVE: CASE EVENT DATE: 20200423
